FAERS Safety Report 10752817 (Version 2)
Quarter: 2015Q1

REPORT INFORMATION
  Report Type: Report from Study
  Country: US (occurrence: US)
  Receive Date: 20150130
  Receipt Date: 20150212
  Transmission Date: 20150721
  Serious: Yes (Hospitalization)
  Sender: FDA-Public Use
  Company Number: PHEH2015US001970

PATIENT
  Sex: Female

DRUGS (2)
  1. CLOZARIL [Suspect]
     Active Substance: CLOZAPINE
     Indication: PSYCHOTIC DISORDER
  2. CLOZARIL [Suspect]
     Active Substance: CLOZAPINE
     Indication: DEMENTIA ALZHEIMER^S TYPE
     Dosage: UNK
     Route: 065

REACTIONS (6)
  - Cardiac failure congestive [Unknown]
  - Back pain [Unknown]
  - Urinary tract infection [Unknown]
  - Dyspnoea [Unknown]
  - Cardiac valve disease [Unknown]
  - Orthopnoea [Unknown]
